FAERS Safety Report 4616996-9 (Version None)
Quarter: 2005Q2

REPORT INFORMATION
  Report Type: 
  Country: None (occurrence: None)
  Receive Date: 20050311
  Receipt Date: 20041115
  Transmission Date: 20051028
  Serious: No
  Sender: FDA-Public Use
  Company Number: 2004-00811

PATIENT
  Age: 60 Year
  Sex: Female

DRUGS (2)
  1. VELCADE [Suspect]
     Indication: MULTIPLE MYELOMA
     Dosage: 2.60 MG, SINGLE, IV BOLUS;  2.60 MG, SINGLE, INTRAVENOUS
     Route: 040
     Dates: start: 20041115, end: 20041115
  2. VELCADE [Suspect]
     Indication: MULTIPLE MYELOMA
     Dosage: 2.60 MG, SINGLE, IV BOLUS;  2.60 MG, SINGLE, INTRAVENOUS
     Route: 040
     Dates: start: 20041115, end: 20041115

REACTIONS (1)
  - OVERDOSE [None]
